FAERS Safety Report 5117968-0 (Version None)
Quarter: 2006Q3

REPORT INFORMATION
  Report Type: 
  Country: None (occurrence: None)
  Receive Date: 20060926
  Receipt Date: 20060914
  Transmission Date: 20061208
  Serious: Yes (Death)
  Sender: FDA-Public Use
  Company Number: 2006EU002584

PATIENT
  Age: 59 Year
  Sex: Female

DRUGS (1)
  1. FK506(TACROLIMUS) CAPSULES [Suspect]
     Indication: LIVER TRANSPLANT
     Dosage: 4.5 MG, UNKNOWN/D, ORAL
     Route: 048
     Dates: start: 20030424

REACTIONS (3)
  - RECURRENT CANCER [None]
  - RETROPERITONEAL CANCER [None]
  - SARCOMA [None]
